FAERS Safety Report 16234859 (Version 2)
Quarter: 2019Q2

REPORT INFORMATION
  Report Type: Spontaneous
  Country: PH (occurrence: PH)
  Receive Date: 20190424
  Receipt Date: 20190604
  Transmission Date: 20190711
  Serious: Yes (Hospitalization)
  Sender: FDA-Public Use
  Company Number: PH-GE HEALTHCARE LIFE SCIENCES-2019CSU002173

PATIENT

DRUGS (4)
  1. OMNIPAQUE [Suspect]
     Active Substance: IOHEXOL
     Indication: COMPUTERISED TOMOGRAM ABDOMEN
     Dosage: 50 ML, SINGLE (VIAL)
     Route: 048
     Dates: start: 20190402, end: 20190402
  2. OMNIPAQUE [Suspect]
     Active Substance: IOHEXOL
     Indication: BREAST CANCER
  3. SCANLUX [Suspect]
     Active Substance: IOPAMIDOL
     Indication: COMPUTERISED TOMOGRAM ABDOMEN
     Dosage: 100 ML, SINGLE
     Route: 042
     Dates: start: 20190402, end: 20190402
  4. SCANLUX [Suspect]
     Active Substance: IOPAMIDOL
     Indication: BREAST CANCER

REACTIONS (3)
  - Peripheral swelling [Recovered/Resolved]
  - Injection site extravasation [Recovered/Resolved]
  - Blister [Recovered/Resolved]

NARRATIVE: CASE EVENT DATE: 20190402
